FAERS Safety Report 13125676 (Version 1)
Quarter: 2017Q1

REPORT INFORMATION
  Report Type: Report from Study
  Country: US (occurrence: US)
  Receive Date: 20170118
  Receipt Date: 20170118
  Transmission Date: 20170428
  Serious: Yes (Hospitalization)
  Sender: FDA-Public Use
  Company Number: US-GILEAD-2017-0254032

PATIENT
  Age: 70 Year
  Sex: Female

DRUGS (14)
  1. AMBRISENTAN [Suspect]
     Active Substance: AMBRISENTAN
     Indication: PULMONARY ARTERIAL HYPERTENSION
     Dosage: 10 MG, QD
     Route: 065
     Dates: start: 20131201
  2. SPIRONOLACTONE. [Concomitant]
     Active Substance: SPIRONOLACTONE
  3. DILTIAZEM. [Concomitant]
     Active Substance: DILTIAZEM
  4. ZOCOR [Concomitant]
     Active Substance: SIMVASTATIN
  5. ADCIRCA [Concomitant]
     Active Substance: TADALAFIL
  6. DIGOXIN. [Concomitant]
     Active Substance: DIGOXIN
  7. ZANTAC [Concomitant]
     Active Substance: RANITIDINE HYDROCHLORIDE
  8. METOPROLOL. [Concomitant]
     Active Substance: METOPROLOL
  9. FERROUS SULFATE. [Concomitant]
     Active Substance: FERROUS SULFATE
  10. ZAROXOLYN [Concomitant]
     Active Substance: METOLAZONE
  11. COUMADIN [Concomitant]
     Active Substance: WARFARIN SODIUM
  12. LASIX [Concomitant]
     Active Substance: FUROSEMIDE
  13. ASPIRIN                            /00002701/ [Concomitant]
     Active Substance: ASPIRIN
  14. SPIRIVA [Concomitant]
     Active Substance: TIOTROPIUM BROMIDE MONOHYDRATE

REACTIONS (1)
  - Dyspnoea [Not Recovered/Not Resolved]

NARRATIVE: CASE EVENT DATE: 20170114
